FAERS Safety Report 7083818-9 (Version None)
Quarter: 2010Q4

REPORT INFORMATION
  Report Type: 
  Country: None (occurrence: None)
  Receive Date: 20101104
  Receipt Date: 20101022
  Transmission Date: 20110411
  Serious: Yes (Hospitalization)
  Sender: FDA-Public Use
  Company Number: US-ACTELION-A-NJ2010-40992

PATIENT
  Sex: Female

DRUGS (1)
  1. BOSENTAN TABLET UNKNOWN US MG [Suspect]
     Indication: PULMONARY ARTERIAL HYPERTENSION
     Dosage: UNK
     Route: 048
     Dates: start: 20050615

REACTIONS (8)
  - ABDOMINAL DISTENSION [None]
  - BLOOD SODIUM DECREASED [None]
  - DRY SKIN [None]
  - EATING DISORDER SYMPTOM [None]
  - FLATULENCE [None]
  - FLUSHING [None]
  - PRURITUS [None]
  - VOLVULUS [None]
